FAERS Safety Report 9986888 (Version 2)
Quarter: 2014Q1

REPORT INFORMATION
  Report Type: Report from Study
  Country: CA (occurrence: CA)
  Receive Date: 20140307
  Receipt Date: 20140307
  Transmission Date: 20141002
  Serious: Yes (Other)
  Sender: FDA-Public Use
  Company Number: PHHY2014CA019336

PATIENT
  Age: 61 Year
  Sex: Female

DRUGS (11)
  1. ACLASTA [Suspect]
     Indication: OSTEOPOROSIS
     Dosage: 5 MG, UNK
     Route: 042
     Dates: start: 20130117
  2. PANCREASE//PANCRELIPASE [Concomitant]
  3. METFORMIN [Concomitant]
  4. GLIMEPIRID [Concomitant]
  5. ONGLYZA [Concomitant]
  6. PANTOPRAZOL [Concomitant]
  7. VIT B12 [Concomitant]
  8. BIO FOLIC ACID [Concomitant]
  9. IRON [Concomitant]
  10. CALTRATE [Concomitant]
  11. VIT D3 [Concomitant]

REACTIONS (7)
  - Sinus tachycardia [Recovered/Resolved]
  - Heart rate increased [Recovered/Resolved]
  - Palpitations [Unknown]
  - Dizziness [Unknown]
  - Alanine aminotransferase increased [Unknown]
  - Blood alkaline phosphatase increased [Unknown]
  - Chest pain [Unknown]
